FAERS Safety Report 22101349 (Version 1)
Quarter: 2023Q1

REPORT INFORMATION
  Report Type: Spontaneous
  Country: US (occurrence: US)
  Receive Date: 20230316
  Receipt Date: 20230316
  Transmission Date: 20230418
  Serious: Yes (Other)
  Sender: FDA-Public Use
  Company Number: US-CATALYSTPHARMACEUTICALPARTNERS-2021-137

PATIENT
  Sex: Female

DRUGS (1)
  1. RUZURGI [Suspect]
     Active Substance: AMIFAMPRIDINE
     Indication: Product used for unknown indication
     Dosage: UNK, TID
     Route: 048

REACTIONS (3)
  - Dyspnoea [Unknown]
  - Dysphagia [Unknown]
  - Product use issue [Unknown]
